FAERS Safety Report 5236330-3 (Version None)
Quarter: 2007Q1

REPORT INFORMATION
  Report Type: 
  Country: None (occurrence: None)
  Receive Date: 20070209
  Receipt Date: 20070127
  Transmission Date: 20070707
  Serious: Yes (Life-Threatening, Hospitalization, Disabling)
  Sender: FDA-Public Use
  Company Number: 230001M07C0L

PATIENT
  Age: 25 Year
  Sex: Female

DRUGS (2)
  1. REBIF [Suspect]
     Indication: MULTIPLE SCLEROSIS
     Dosage: 44 MCG, 3 IN 1 WEEKS, SUBCUTANEOUS
     Route: 058
     Dates: start: 20050301, end: 20061228
  2. ACETAMINOPHEN [Concomitant]

REACTIONS (4)
  - CEREBROVASCULAR DISORDER [None]
  - HEADACHE [None]
  - HEMIPLEGIA [None]
  - THROMBOSIS [None]
